FAERS Safety Report 5862660-8 (Version None)
Quarter: 2008Q3

REPORT INFORMATION
  Report Type: 
  Country: None (occurrence: None)
  Receive Date: 20080818
  Receipt Date: 20080620
  Transmission Date: 20090109
  Serious: No
  Sender: FDA-Public Use
  Company Number: WAES 0806USA07766

PATIENT
  Age: 72 Year
  Sex: Female

DRUGS (3)
  1. JANUVIA [Suspect]
     Indication: TYPE 2 DIABETES MELLITUS
     Dosage: 100 MG/DAILY/PO
     Route: 048
     Dates: start: 20080618
  2. [THERAPY UNSPECIFIED] [Concomitant]
  3. INSULIN [Concomitant]

REACTIONS (10)
  - AMNESIA [None]
  - ANGINA PECTORIS [None]
  - BALANCE DISORDER [None]
  - DIZZINESS [None]
  - FALL [None]
  - FATIGUE [None]
  - HEADACHE [None]
  - JOINT SWELLING [None]
  - MYALGIA [None]
  - PRURITUS [None]
